FAERS Safety Report 15937035 (Version 3)
Quarter: 2020Q1

REPORT INFORMATION
  Report Type: Spontaneous
  Country: US (occurrence: US)
  Receive Date: 20190208
  Receipt Date: 20200312
  Transmission Date: 20200409
  Serious: Yes (Hospitalization, Other)
  Sender: FDA-Public Use
  Company Number: US-ASTRAZENECA-2018SF48028

PATIENT
  Age: 68 Year
  Sex: Male
  Weight: 81.6 kg

DRUGS (10)
  1. PRILOSEC OTC [Suspect]
     Active Substance: OMEPRAZOLE MAGNESIUM
     Indication: DYSPEPSIA
     Route: 048
     Dates: start: 20140520
  2. AMLODIPINE [Concomitant]
     Active Substance: AMLODIPINE BESYLATE
  3. GLIMEPIRIDE. [Concomitant]
     Active Substance: GLIMEPIRIDE
  4. METFORMIN [Concomitant]
     Active Substance: METFORMIN HYDROCHLORIDE
  5. PRILOSEC OTC [Suspect]
     Active Substance: OMEPRAZOLE MAGNESIUM
     Indication: DYSPEPSIA
     Dosage: EVERY DAY FOR 12 YEARS
     Route: 048
  6. LIPITOR [Concomitant]
     Active Substance: ATORVASTATIN CALCIUM
  7. PRILOSEC [Suspect]
     Active Substance: OMEPRAZOLE MAGNESIUM
     Indication: DYSPEPSIA
     Dosage: FOR MULTIPLE AND VARIOUS YEARS
     Route: 048
  8. PRILOSEC [Suspect]
     Active Substance: OMEPRAZOLE MAGNESIUM
     Indication: DYSPEPSIA
     Route: 048
     Dates: start: 20130101
  9. BABY ASPIRIN [Concomitant]
     Active Substance: ASPIRIN
  10. TUMS [Concomitant]
     Active Substance: CALCIUM CARBONATE

REACTIONS (5)
  - Nephropathy [Unknown]
  - Chronic kidney disease [Unknown]
  - Renal failure [Unknown]
  - Renal injury [Not Recovered/Not Resolved]
  - Rebound acid hypersecretion [Unknown]

NARRATIVE: CASE EVENT DATE: 2015
